FAERS Safety Report 13089824 (Version 1)
Quarter: 2017Q1

REPORT INFORMATION
  Report Type: Spontaneous
  Country: NL (occurrence: NL)
  Receive Date: 20170105
  Receipt Date: 20170105
  Transmission Date: 20170428
  Serious: Yes (Hospitalization)
  Sender: FDA-Public Use
  Company Number: NL-TEVA-725460ACC

PATIENT
  Age: 65 Year
  Sex: Male

DRUGS (2)
  1. OMEPRAZOL TABLET MSR 40MG [Suspect]
     Active Substance: OMEPRAZOLE
     Indication: PRODUCT USED FOR UNKNOWN INDICATION
     Dosage: 40 MILLIGRAM DAILY; 1 TIME PER DAY 1 PIECE(S)
     Route: 048
     Dates: start: 200704
  2. HYDROCHLOROTHIAZIDE TABLET 12.5MG [Interacting]
     Active Substance: HYDROCHLOROTHIAZIDE
     Indication: HYPERTENSION
     Dosage: 12.5 MILLIGRAM DAILY; 1 TIME PER DAY 1 PIECE(S)
     Route: 048
     Dates: start: 201603, end: 20160706

REACTIONS (6)
  - Drug interaction [Recovering/Resolving]
  - Blood magnesium decreased [Recovering/Resolving]
  - Lactose intolerance [Recovering/Resolving]
  - Blood calcium decreased [Recovering/Resolving]
  - Blood potassium decreased [Recovering/Resolving]
  - Diarrhoea [Recovering/Resolving]

NARRATIVE: CASE EVENT DATE: 20160706
